FAERS Safety Report 8330123-6 (Version None)
Quarter: 2012Q2

REPORT INFORMATION
  Report Type: 
  Country: None (occurrence: None)
  Receive Date: 20120502
  Receipt Date: 20120425
  Transmission Date: 20120825
  Serious: Yes (Other)
  Sender: FDA-Public Use
  Company Number: US-PFIZER INC-2012103552

PATIENT
  Sex: Female

DRUGS (2)
  1. LYRICA [Suspect]
     Indication: LUMBAR SPINAL STENOSIS
     Dosage: UNK
     Dates: start: 20120101, end: 20120101
  2. LYRICA [Suspect]
     Dosage: 2 PILLS
     Dates: start: 20120424

REACTIONS (1)
  - EYE SWELLING [None]
